FAERS Safety Report 19375417 (Version 1)
Quarter: 2021Q2

REPORT INFORMATION
  Report Type: Spontaneous
  Country: US (occurrence: US)
  Receive Date: 20210604
  Receipt Date: 20210604
  Transmission Date: 20210717
  Serious: No
  Sender: FDA-Public Use
  Company Number: US-BRISTOL-MYERS SQUIBB COMPANY-BMS-2021-051890

PATIENT
  Age: 37 Year
  Sex: Female

DRUGS (2)
  1. SPRYCEL [Suspect]
     Active Substance: DASATINIB
     Indication: CHRONIC MYELOID LEUKAEMIA (IN REMISSION)
     Dosage: 100 MILLIGRAM, DAILY
     Route: 048
     Dates: start: 201710
  2. SPRYCEL [Suspect]
     Active Substance: DASATINIB
     Dosage: 100 MILLIGRAM, DAILY
     Route: 048
     Dates: start: 202104

REACTIONS (4)
  - Dizziness [Unknown]
  - Fatigue [Unknown]
  - Anaemia [Unknown]
  - Headache [Unknown]
